FAERS Safety Report 5078164-9 (Version None)
Quarter: 2006Q3

REPORT INFORMATION
  Report Type: 
  Country: None (occurrence: None)
  Receive Date: 20060725
  Receipt Date: 20060411
  Transmission Date: 20061208
  Serious: No
  Sender: FDA-Public Use
  Company Number: 2006-BP-04161BP

PATIENT

DRUGS (7)
  1. APTIVUS/RITONAVIR CAPSULES [Suspect]
     Indication: URTICARIA
     Dosage: 1000 MG (250 MG, 500 MG BID), PO
     Route: 048
  2. FUZEON [Concomitant]
  3. EPZICOM [Concomitant]
  4. NORVIR [Concomitant]
  5. VIDEX EC [Concomitant]
  6. VIREAD [Concomitant]
  7. KALETRA [Concomitant]

REACTIONS (1)
  - RENAL IMPAIRMENT [None]
